FAERS Safety Report 14003481 (Version 1)
Quarter: 2017Q3

REPORT INFORMATION
  Report Type: Spontaneous
  Country: US (occurrence: US)
  Receive Date: 20170922
  Receipt Date: 20170922
  Transmission Date: 20171128
  Serious: Yes (Other)
  Sender: FDA-Public Use
  Company Number: US-WEST-WARD PHARMACEUTICALS CORP.-US-H14001-17-03559

PATIENT
  Age: 6 Year
  Sex: Male

DRUGS (3)
  1. METHIMAZOLE. [Suspect]
     Active Substance: METHIMAZOLE
     Indication: BASEDOW^S DISEASE
     Route: 065
  2. SSKI [Suspect]
     Active Substance: POTASSIUM IODIDE
     Indication: HYPERTHYROIDISM
     Route: 065
  3. PROPRANOLOL [Suspect]
     Active Substance: PROPRANOLOL HYDROCHLORIDE
     Indication: BASEDOW^S DISEASE
     Route: 065

REACTIONS (3)
  - Electrocardiogram QT prolonged [Recovered/Resolved]
  - Hypothyroidism [Recovered/Resolved]
  - Cardiac arrest [Recovered/Resolved]
